FAERS Safety Report 16421755 (Version 1)
Quarter: 2019Q2

REPORT INFORMATION
  Report Type: Spontaneous
  Country: JP (occurrence: JP)
  Receive Date: 20190612
  Receipt Date: 20190612
  Transmission Date: 20190711
  Serious: Yes (Hospitalization, Other)
  Sender: FDA-Public Use
  Company Number: JP-PFIZER INC-2019247727

PATIENT
  Age: 90 Year
  Sex: Female

DRUGS (2)
  1. ADALAT [Concomitant]
     Active Substance: NIFEDIPINE
     Dosage: UNK
  2. SELARA [Suspect]
     Active Substance: EPLERENONE
     Dosage: 50 MG, 1X/DAY

REACTIONS (3)
  - Hyperkalaemia [Unknown]
  - Acute kidney injury [Unknown]
  - Dehydration [Unknown]
